FAERS Safety Report 20030338 (Version 1)
Quarter: 2021Q4

REPORT INFORMATION
  Report Type: Spontaneous
  Country: FR (occurrence: FR)
  Receive Date: 20211103
  Receipt Date: 20211103
  Transmission Date: 20220303
  Serious: Yes (Other)
  Sender: FDA-Public Use
  Company Number: FR-BRISTOL-MYERS SQUIBB COMPANY-16431173

PATIENT
  Age: 29 Year
  Sex: Female
  Weight: 88 kg

DRUGS (1)
  1. ABILIFY [Suspect]
     Active Substance: ARIPIPRAZOLE
     Indication: Delusion
     Dosage: 10 MG, QD
     Route: 048
     Dates: start: 200807

REACTIONS (4)
  - Pregnancy on oral contraceptive [Unknown]
  - Twin pregnancy [Recovered/Resolved]
  - Live birth [Unknown]
  - Off label use [Unknown]

NARRATIVE: CASE EVENT DATE: 20120723
